FAERS Safety Report 12895120 (Version 1)
Quarter: 2016Q4

REPORT INFORMATION
  Report Type: Spontaneous
  Country: US (occurrence: US)
  Receive Date: 20161028
  Receipt Date: 20161028
  Transmission Date: 20170207
  Serious: Yes (Hospitalization)
  Sender: FDA-Public Use
  Company Number: None

PATIENT
  Age: 49 Year
  Sex: Female

DRUGS (7)
  1. PROZAC [Concomitant]
     Active Substance: FLUOXETINE HYDROCHLORIDE
  2. BUMETANIDE. [Concomitant]
     Active Substance: BUMETANIDE
  3. TYVASO [Concomitant]
     Active Substance: TREPROSTINIL
  4. SPIRONOLACT [Concomitant]
  5. MULTIVITAMIN [Concomitant]
     Active Substance: VITAMINS
  6. OPSUMIT [Concomitant]
     Active Substance: MACITENTAN
  7. ADCIRCA [Suspect]
     Active Substance: TADALAFIL
     Indication: PULMONARY ARTERIAL HYPERTENSION
     Route: 048
     Dates: start: 20161003

REACTIONS (5)
  - Weight increased [None]
  - Dyspnoea [None]
  - Chest pain [None]
  - Fluid retention [None]
  - Cardiac failure [None]

NARRATIVE: CASE EVENT DATE: 20161014
